FAERS Safety Report 10152025 (Version 1)
Quarter: 2014Q2

REPORT INFORMATION
  Report Type: Spontaneous
  Country: US (occurrence: US)
  Receive Date: 20140505
  Receipt Date: 20140505
  Transmission Date: 20141212
  Serious: No
  Sender: FDA-Public Use
  Company Number: US-TEVA-466298USA

PATIENT
  Sex: Female
  Weight: 88.08 kg

DRUGS (14)
  1. CEFALEXIN [Suspect]
  2. ASPIRIN [Concomitant]
     Indication: CARDIAC DISORDER
     Dosage: 81 MILLIGRAM DAILY;
     Route: 048
  3. LORATADINE [Concomitant]
     Indication: HYPERSENSITIVITY
     Dosage: 10 MILLIGRAM DAILY;
     Route: 048
  4. COUMADIN [Concomitant]
     Indication: ANTICOAGULANT THERAPY
     Dosage: 5 MG ON MON, WED, 2.5 MG ON OTHER DAYS
     Route: 048
  5. FERROUS SULFATE [Concomitant]
     Dosage: 325 MILLIGRAM DAILY;
     Route: 048
  6. LASIX [Concomitant]
     Indication: DIURETIC THERAPY
     Dosage: 40 MILLIGRAM DAILY;
     Route: 048
  7. KLOR CON [Concomitant]
     Indication: MINERAL SUPPLEMENTATION
     Dosage: 20 MILLIEQUIVALENTS DAILY;
     Route: 048
  8. FENOFIBRATE [Concomitant]
     Indication: BLOOD CHOLESTEROL INCREASED
     Dosage: 160 MILLIGRAM DAILY;
     Route: 048
  9. MAGNESIUM [Concomitant]
     Indication: CARDIAC DISORDER
     Dosage: 750 MILLIGRAM DAILY;
     Route: 048
  10. LOVASTATIN [Concomitant]
     Indication: BLOOD CHOLESTEROL INCREASED
     Dosage: 40 MILLIGRAM DAILY;
     Route: 048
  11. MULTIVITAMIN [Concomitant]
     Indication: VITAMIN SUPPLEMENTATION
     Route: 048
  12. PAXIL [Concomitant]
     Indication: DEPRESSION
     Dosage: 20 MILLIGRAM DAILY;
     Route: 048
  13. SIMETHICONE [Concomitant]
     Indication: FLATULENCE
     Dosage: 300 MILLIGRAM DAILY;
     Route: 048
  14. LEVOTHYROXINE [Concomitant]
     Indication: HYPOTHYROIDISM
     Dosage: 125 MICROGRAM DAILY;
     Route: 048

REACTIONS (1)
  - Drug hypersensitivity [Unknown]
